FAERS Safety Report 13380289 (Version 9)
Quarter: 2018Q3

REPORT INFORMATION
  Report Type: Report from Study
  Country: JP (occurrence: JP)
  Receive Date: 20170329
  Receipt Date: 20180816
  Transmission Date: 20181010
  Serious: Yes (Death, Life-Threatening, Hospitalization, Disabling, Other)
  Sender: FDA-Public Use
  Company Number: JP-ALEXION PHARMACEUTICALS INC.-A201702633

PATIENT
  Age: 10 Month
  Sex: Male

DRUGS (43)
  1. CEFAZOLIN [Concomitant]
     Active Substance: CEFAZOLIN
     Indication: INFECTION
     Dosage: 160 MG, BID
     Route: 041
     Dates: start: 20170407, end: 20170408
  2. MEROPENEM. [Concomitant]
     Active Substance: MEROPENEM
     Indication: STAPHYLOCOCCAL SEPSIS
     Dosage: 400 MG, TID
     Route: 041
     Dates: start: 20170216, end: 2017
  3. TOLVAPTAN [Concomitant]
     Active Substance: TOLVAPTAN
     Indication: NEPHROTIC SYNDROME
     Dosage: 1.5 MG, QD
     Route: 048
     Dates: start: 20170201, end: 20170328
  4. NICARDIPINE HYDROCHLORIDE. [Concomitant]
     Active Substance: NICARDIPINE HYDROCHLORIDE
     Indication: POSTERIOR REVERSIBLE ENCEPHALOPATHY SYNDROME
     Dosage: 12 MG, UNK
     Dates: start: 20170213, end: 20170216
  5. SOLIRIS [Suspect]
     Active Substance: ECULIZUMAB
     Indication: HAEMOLYTIC URAEMIC SYNDROME
     Dosage: 600 MG, QW
     Route: 042
     Dates: start: 20170224, end: 20170224
  6. EPOETIN ALFA [Concomitant]
     Active Substance: ERYTHROPOIETIN
     Indication: NEPHROGENIC ANAEMIA
     Dosage: 1500 IU, QW
     Route: 042
     Dates: start: 20170217, end: 20170422
  7. CEFOTAXIME SODIUM [Concomitant]
     Active Substance: CEFOTAXIME SODIUM
     Indication: PNEUMOCOCCAL SEPSIS
     Dosage: 550 MG, TID
     Route: 041
     Dates: start: 20170123, end: 20170128
  8. METHYLPREDNISOLONE SODIUM SUCCINATE. [Concomitant]
     Active Substance: METHYLPREDNISOLONE SODIUM SUCCINATE
     Indication: NEPHROTIC SYNDROME
     Dosage: 250 MG, QD
     Route: 041
     Dates: start: 20170203, end: 20170205
  9. NEORAL [Concomitant]
     Active Substance: CYCLOSPORINE
     Indication: NEPHROTIC SYNDROME
     Dosage: 20 MG, BID
     Route: 048
     Dates: start: 20170206, end: 20170310
  10. VANCOMYCIN                         /00314402/ [Concomitant]
     Active Substance: VANCOMYCIN
     Dosage: 100?200 MG, DAILY
     Route: 041
     Dates: start: 20170418, end: 20170526
  11. PREDNISOLONE. [Concomitant]
     Active Substance: PREDNISOLONE
     Dosage: 30 MG, QD
     Route: 042
     Dates: start: 20170213, end: 20170405
  12. SOLU?MEDROL [Concomitant]
     Active Substance: METHYLPREDNISOLONE SODIUM SUCCINATE
     Indication: NEPHROTIC SYNDROME
     Dosage: 150 MG, QD
     Route: 041
     Dates: start: 20170307, end: 20170308
  13. FAMOTIDINE. [Concomitant]
     Active Substance: FAMOTIDINE
     Indication: NEPHROTIC SYNDROME
     Dosage: 10 MG, QD
     Route: 042
     Dates: start: 20170123, end: 20170204
  14. RECOMODULIN [Concomitant]
     Active Substance: THROMBOMODULIN ALFA
     Indication: THROMBOTIC MICROANGIOPATHY
     Dosage: 4480 IU, QD
     Route: 041
     Dates: start: 20170201, end: 20170205
  15. VANCOMYCIN                         /00314402/ [Concomitant]
     Active Substance: VANCOMYCIN
     Dosage: 90 MG, QD
     Route: 041
     Dates: start: 20170602, end: 20170602
  16. VANCOMYCIN                         /00314402/ [Concomitant]
     Active Substance: VANCOMYCIN
     Dosage: 90 MG, QD
     Route: 041
     Dates: start: 20170616, end: 20170616
  17. VANCOMYCIN                         /00314402/ [Concomitant]
     Active Substance: VANCOMYCIN
     Dosage: 90 MG, QD
     Route: 041
     Dates: start: 20170715, end: 20170715
  18. ZYVOX [Concomitant]
     Active Substance: LINEZOLID
     Indication: STAPHYLOCOCCAL SEPSIS
     Dosage: 100 MG, BID
     Route: 041
     Dates: start: 20170220, end: 20170302
  19. PREDONINE [Concomitant]
     Active Substance: PREDNISOLONE
     Indication: NEPHROTIC SYNDROME
     Dosage: UNK, QD
     Route: 041
     Dates: start: 20170124, end: 20170405
  20. FUNGUARD [Concomitant]
     Active Substance: MICAFUNGIN SODIUM
     Indication: STAPHYLOCOCCAL SEPSIS
     Dosage: 50 MG, QD
     Route: 041
     Dates: start: 20170216, end: 20170326
  21. MEROPENEM. [Concomitant]
     Active Substance: MEROPENEM
     Dosage: 275 MG, QD
     Route: 041
     Dates: start: 20170716, end: 20170720
  22. MAXIPIME [Concomitant]
     Active Substance: CEFEPIME HYDROCHLORIDE
     Indication: STAPHYLOCOCCAL SEPSIS
     Dosage: 300 MG, QD
     Route: 041
     Dates: start: 20170708, end: 20170716
  23. FAMOTIDINE. [Concomitant]
     Active Substance: FAMOTIDINE
     Indication: PROPHYLAXIS
  24. VANCOMYCIN                         /00314402/ [Concomitant]
     Active Substance: VANCOMYCIN
     Dosage: 90 MG, QOD
     Route: 041
     Dates: start: 20170607, end: 20170613
  25. MEROPENEM. [Concomitant]
     Active Substance: MEROPENEM
     Dosage: 400 MG, BID
     Route: 041
     Dates: start: 20170417, end: 20170423
  26. MEROPENEM. [Concomitant]
     Active Substance: MEROPENEM
     Dosage: 275 MG, QD
     Route: 041
     Dates: start: 20170602, end: 20170609
  27. VANCOMYCIN                         /00314402/ [Concomitant]
     Active Substance: VANCOMYCIN
     Dosage: 100 MG, QD
     Route: 041
     Dates: start: 20170220, end: 20170220
  28. PREDNISOLONE. [Concomitant]
     Active Substance: PREDNISOLONE
     Indication: NEPHROTIC SYNDROME
     Dosage: 20 MG, QD
     Route: 041
     Dates: start: 20170123, end: 20170123
  29. PREDNISOLONE. [Concomitant]
     Active Substance: PREDNISOLONE
     Dosage: 30 MG, QD
     Route: 042
     Dates: start: 20170124, end: 20170202
  30. NESP [Concomitant]
     Active Substance: DARBEPOETIN ALFA
     Indication: NEPHROGENIC ANAEMIA
     Dosage: 6 ?G, QW
     Route: 041
     Dates: start: 20170427, end: 20170707
  31. TEICOPLANIN [Concomitant]
     Active Substance: TEICOPLANIN
     Indication: STAPHYLOCOCCAL SEPSIS
     Dosage: 140 MG, QD
     Route: 041
     Dates: start: 20170719, end: 20170720
  32. SOLIRIS [Suspect]
     Active Substance: ECULIZUMAB
     Dosage: 300 MG, UNK
     Route: 042
     Dates: start: 20170303, end: 20170707
  33. VANCOMYCIN                         /00314402/ [Concomitant]
     Active Substance: VANCOMYCIN
     Indication: STAPHYLOCOCCAL SEPSIS
     Dosage: 100 MG, BID
     Route: 042
     Dates: start: 20170216, end: 20170219
  34. VANCOMYCIN                         /00314402/ [Concomitant]
     Active Substance: VANCOMYCIN
     Dosage: 90 MG, QOD
     Route: 041
     Dates: start: 20170710, end: 20170712
  35. CEFTAZIDIME. [Concomitant]
     Active Substance: CEFTAZIDIME
     Indication: STAPHYLOCOCCAL SEPSIS
     Dosage: 300 MG, QD
     Route: 042
     Dates: start: 20170630, end: 20170708
  36. CEFAMEZIN                          /00288502/ [Concomitant]
     Active Substance: CEFAZOLIN
     Indication: STAPHYLOCOCCAL SEPSIS
     Dosage: 150 MG, BID
     Route: 041
     Dates: start: 20170215, end: 20170215
  37. MEROPEN                            /01250501/ [Concomitant]
     Active Substance: MEROPENEM
     Indication: STAPHYLOCOCCAL SEPSIS
     Dosage: 400 MG, TID
     Route: 041
     Dates: start: 20170216, end: 20170301
  38. VANCOMYCIN                         /00314402/ [Concomitant]
     Active Substance: VANCOMYCIN
     Dosage: 150 MG, QD
     Route: 041
     Dates: start: 20170327, end: 20170405
  39. PREDNISOLONE. [Concomitant]
     Active Substance: PREDNISOLONE
     Dosage: 30 MG, QD
     Route: 042
     Dates: start: 20170206, end: 20170209
  40. CEFTRIAXONE. [Concomitant]
     Active Substance: CEFTRIAXONE
     Indication: INFECTION
     Dosage: 600 MG, BID
     Route: 041
     Dates: start: 20170301, end: 20170326
  41. MORPHINE HYDROCHLORIDE [Concomitant]
     Active Substance: MORPHINE HYDROCHLORIDE
     Indication: ANALGESIC THERAPY
     Dosage: 10 MG, QD
     Route: 041
     Dates: start: 20170226, end: 20170319
  42. FUROSEMIDE. [Concomitant]
     Active Substance: FUROSEMIDE
     Indication: NEPHROTIC SYNDROME
     Dosage: 3 MG, QD
     Route: 042
     Dates: start: 20170123, end: 20170126
  43. METHYLPREDNISOLONE SODIUM SUCCINATE. [Concomitant]
     Active Substance: METHYLPREDNISOLONE SODIUM SUCCINATE
     Dosage: 250 MG, QD
     Route: 042
     Dates: start: 20170210, end: 20170212

REACTIONS (16)
  - Cerebral venous thrombosis [Fatal]
  - Haemorrhagic diathesis [Recovered/Resolved with Sequelae]
  - Platelet count decreased [Recovered/Resolved]
  - Intra-abdominal haemorrhage [Not Recovered/Not Resolved]
  - Staphylococcal infection [Recovered/Resolved]
  - Cerebral ischaemia [Unknown]
  - Sepsis [Recovered/Resolved]
  - Renal impairment [Fatal]
  - Vena cava thrombosis [Unknown]
  - Pneumonia klebsiella [Fatal]
  - Klebsiella sepsis [Fatal]
  - Fungal peritonitis [Not Recovered/Not Resolved]
  - Condition aggravated [Fatal]
  - Cardiac arrest [Fatal]
  - Multiple organ dysfunction syndrome [Fatal]
  - Hypertension [Fatal]

NARRATIVE: CASE EVENT DATE: 201703
